FAERS Safety Report 8034502-6 (Version None)
Quarter: 2012Q1

REPORT INFORMATION
  Report Type: 
  Country: None (occurrence: None)
  Receive Date: 20120110
  Receipt Date: 20120105
  Transmission Date: 20120608
  Serious: Yes (Hospitalization, Disabling, Other)
  Sender: FDA-Public Use
  Company Number: DK-PFIZER INC-2011303926

PATIENT
  Age: 29 Year
  Sex: Female

DRUGS (10)
  1. IMURAN [Concomitant]
  2. PREDNISOLONE [Suspect]
     Dosage: 50 MG, 1X/DAY
     Dates: start: 20090223
  3. ENTOCORT EC [Concomitant]
  4. METHOTREXATE SODIUM [Concomitant]
  5. PREDNISOLONE [Suspect]
     Indication: COLITIS ULCERATIVE
     Dosage: 40 MG, 1X/DAY
     Dates: start: 20090212
  6. PREDNISOLONE [Suspect]
     Dosage: 75 MG, 1X/DAY
     Dates: start: 20090226
  7. ASACOL [Concomitant]
  8. CALCIUM [Concomitant]
     Dosage: 2 TABLETS DAILY
  9. SOLU-MEDROL [Suspect]
     Indication: COLITIS ULCERATIVE
     Dosage: 40 MG, 2X/DAY
     Route: 042
     Dates: start: 20090218, end: 20090201
  10. PREDNISOLONE [Suspect]
     Dosage: GRADUAL REDUCTION OF PREDNISOLON WITH 5 MG WEEKLY
     Dates: start: 20090303, end: 20090501

REACTIONS (2)
  - OSTEONECROSIS [None]
  - HIP ARTHROPLASTY [None]
